FAERS Safety Report 8178544-9 (Version None)
Quarter: 2012Q1

REPORT INFORMATION
  Report Type: 
  Country: None (occurrence: None)
  Receive Date: 20120301
  Receipt Date: 20120217
  Transmission Date: 20120608
  Serious: Yes (Hospitalization)
  Sender: FDA-Public Use
  Company Number: US-ABBOTT-12P-163-0906275-00

PATIENT
  Age: 64 Year
  Sex: Female

DRUGS (19)
  1. OXYGEN [Concomitant]
     Dosage: AT NIGHT AND DURING THE DAY
  2. OXYGEN [Concomitant]
     Indication: PRODUCT USED FOR UNKNOWN INDICATION
     Dosage: 2 LPM
  3. METHOTREXATE [Concomitant]
     Indication: PRODUCT USED FOR UNKNOWN INDICATION
  4. HUMIRA [Suspect]
     Indication: PSORIATIC ARTHROPATHY
     Dates: start: 20110615, end: 20120125
  5. DIOVAN [Concomitant]
     Indication: HYPERTENSION
  6. NOVOLOG [Concomitant]
     Indication: PRODUCT USED FOR UNKNOWN INDICATION
     Dosage: 40/45/50
  7. VENTOLIN [Concomitant]
     Indication: CHRONIC OBSTRUCTIVE PULMONARY DISEASE
     Route: 055
  8. NOVOLOG [Concomitant]
     Dosage: SLIDING SCALE 25/30/35 PER FINGER STICK BLOOD SUGAR READINGS
  9. LANTUS [Concomitant]
     Indication: PRODUCT USED FOR UNKNOWN INDICATION
  10. PREDNISONE TAB [Concomitant]
     Indication: PRODUCT USED FOR UNKNOWN INDICATION
  11. DILTIAZEM HCL [Concomitant]
     Indication: HYPERTENSION
  12. ADVAIR DISKUS 100/50 [Concomitant]
     Indication: CHRONIC OBSTRUCTIVE PULMONARY DISEASE
  13. ONE A DAY [Concomitant]
     Indication: ELECTROLYTE SUBSTITUTION THERAPY
  14. LEVOTHYROXINE SODIUM [Concomitant]
     Indication: ELECTROLYTE SUBSTITUTION THERAPY
  15. LORAZEPAM [Concomitant]
     Indication: ANXIETY
     Dosage: 1 AT 2PM AND 1 AT BEDTIME
  16. LANTUS [Concomitant]
     Dosage: 50 UNITS IN MORNING, 40 UNITS IN EVENING
  17. LASIX [Concomitant]
     Indication: PRODUCT USED FOR UNKNOWN INDICATION
  18. LASIX [Concomitant]
  19. FOLIC ACID [Concomitant]
     Indication: PRODUCT USED FOR UNKNOWN INDICATION

REACTIONS (11)
  - DYSPNOEA [None]
  - BLOOD GLUCOSE FLUCTUATION [None]
  - BLOOD GLUCOSE DECREASED [None]
  - OXYGEN SATURATION DECREASED [None]
  - LOSS OF CONSCIOUSNESS [None]
  - MEMORY IMPAIRMENT [None]
  - DIARRHOEA [None]
  - OXYGEN CONSUMPTION INCREASED [None]
  - PYREXIA [None]
  - WEIGHT DECREASED [None]
  - GAIT DISTURBANCE [None]
